FAERS Safety Report 13175253 (Version 1)
Quarter: 2017Q1

REPORT INFORMATION
  Report Type: Spontaneous
  Country: US (occurrence: US)
  Receive Date: 20170201
  Receipt Date: 20170201
  Transmission Date: 20170428
  Serious: No
  Sender: FDA-Public Use
  Company Number: US-TARO-2016TAR00913

PATIENT
  Age: 61 Year
  Sex: Female
  Weight: 52.15 kg

DRUGS (1)
  1. NYSTATIN AND TRIAMCINOLONE ACETONIDE [Suspect]
     Active Substance: NYSTATIN\TRIAMCINOLONE ACETONIDE
     Indication: GENITAL PAIN
     Dosage: UNK, 2X/DAY (^TINY BIT^)
     Route: 061
     Dates: start: 20161023, end: 20161026

REACTIONS (1)
  - Burning sensation [Recovering/Resolving]

NARRATIVE: CASE EVENT DATE: 20161023
